FAERS Safety Report 4890887-0 (Version None)
Quarter: 2006Q1

REPORT INFORMATION
  Report Type: 
  Country: None (occurrence: None)
  Receive Date: 20060125
  Receipt Date: 20060111
  Transmission Date: 20060701
  Serious: Yes (Hospitalization, Other)
  Sender: FDA-Public Use
  Company Number: AR-AVENTIS-200610228EU

PATIENT
  Age: 26 Year
  Sex: Female

DRUGS (3)
  1. ENOXAPARIN SODIUM [Suspect]
     Indication: ANTIPHOSPHOLIPID SYNDROME
     Route: 058
     Dates: start: 20050701, end: 20051226
  2. FOLIC ACID [Concomitant]
  3. ASPIRIN [Concomitant]

REACTIONS (7)
  - ABORTION SPONTANEOUS [None]
  - APPLICATION SITE NECROSIS [None]
  - DRUG EXPOSURE DURING PREGNANCY [None]
  - HELLP SYNDROME [None]
  - HYPERSENSITIVITY [None]
  - INJECTION SITE OEDEMA [None]
  - INJECTION SITE PAIN [None]
